FAERS Safety Report 24437313 (Version 1)
Quarter: 2024Q4

REPORT INFORMATION
  Report Type: Spontaneous
  Country: US (occurrence: None)
  Receive Date: 20241011
  Receipt Date: 20241011
  Transmission Date: 20250115
  Serious: Yes (Disabling, Other)
  Sender: Public
  Company Number: None

PATIENT
  Age: 5 Year
  Sex: Male

DRUGS (1)
  1. MIRALAX [Suspect]
     Active Substance: POLYETHYLENE GLYCOL 3350
     Indication: Constipation
     Dosage: FREQUENCY : DAILY;?
     Route: 048
     Dates: start: 20240929, end: 20241009

REACTIONS (4)
  - Aggression [None]
  - Disturbance in attention [None]
  - Behaviour disorder [None]
  - Therapy cessation [None]

NARRATIVE: CASE EVENT DATE: 20241008
